FAERS Safety Report 9238661 (Version 1)
Quarter: 2013Q1

REPORT INFORMATION
  Report Type: Spontaneous
  Country: US (occurrence: None)
  Receive Date: 20121106
  Receipt Date: 20121106
  Transmission Date: 20140127
  Serious: No
  Sender: FDA-Public Use
  Company Number: 1000038197

PATIENT
  Age: 82 Year
  Sex: Male

DRUGS (5)
  1. DALIRESP [Suspect]
     Indication: CHRONIC OBSTRUCTIVE PULMONARY DISEASE
     Route: 048
     Dates: start: 20120815, end: 20120817
  2. ASACOL (MESALAZINE) MODIFIED-RELEASE TABLET, 400 MG [Concomitant]
  3. PROTONIX (PANTOPRAZOLE SODIUM SESQUIHYDRATE) [Concomitant]
  4. PRAVACHOL (PRAVASTATIN SODIUM) [Concomitant]
  5. TOPROL (METOPROLOL SUCCINATE) [Concomitant]

REACTIONS (1)
  - Muscle spasms [None]
